FAERS Safety Report 6150726-7 (Version None)
Quarter: 2009Q2

REPORT INFORMATION
  Report Type: 
  Country: None (occurrence: None)
  Receive Date: 20090409
  Receipt Date: 20090402
  Transmission Date: 20091009
  Serious: Yes (Other)
  Sender: FDA-Public Use
  Company Number: US-JNJCH-2009009387

PATIENT
  Age: 87 Year
  Sex: Female
  Weight: 71.7 kg

DRUGS (11)
  1. TUCKS (OLD FORM) [Suspect]
     Indication: HAEMORRHOIDS
     Dosage: TEXT:UNKNOWN  2 OR 3X DAY
     Route: 061
  2. WARFARIN SODIUM [Suspect]
     Indication: THROMBOSIS
     Dosage: TEXT:1X DAY
     Route: 048
  3. CELEXA [Concomitant]
     Indication: DEPRESSION
     Dosage: TEXT:20MG 1X DAY
     Route: 065
  4. METFORMIN HCL [Concomitant]
     Indication: DIABETES MELLITUS
     Dosage: TEXT:5MG 1X DAY
     Route: 065
  5. GLIPIZIDE [Concomitant]
     Indication: DIABETES MELLITUS
     Dosage: TEXT:5MG 1X DAY
     Route: 065
  6. SIMVASTATIN [Concomitant]
     Indication: BLOOD CHOLESTEROL INCREASED
     Dosage: TEXT:40MG 1X DAY
     Route: 065
  7. PREMERIN [Concomitant]
     Indication: HORMONE REPLACEMENT THERAPY
     Dosage: TEXT:.3MG 1X DAY
     Route: 065
  8. COLACE [Concomitant]
     Indication: LAXATIVE SUPPORTIVE CARE
     Dosage: TEXT:1X DAY
     Route: 065
  9. LISINOPRIL [Concomitant]
     Indication: HYPERTENSION
     Dosage: TEXT:20MG 1X DAY
     Route: 065
  10. ALL OTHER THERAPEUTIC PRODUCTS [Concomitant]
     Indication: MEMORY IMPAIRMENT
     Dosage: TEXT:2X DAY
     Route: 065
  11. KEPPRA [Concomitant]
     Indication: CONVULSION
     Dosage: TEXT:1X DAY
     Route: 065

REACTIONS (1)
  - RECTAL HAEMORRHAGE [None]
